FAERS Safety Report 10053297 (Version 3)
Quarter: 2014Q2

REPORT INFORMATION
  Report Type: Report from Study
  Country: US (occurrence: US)
  Receive Date: 20140402
  Receipt Date: 20140414
  Transmission Date: 20141212
  Serious: Yes (Hospitalization, Other)
  Sender: FDA-Public Use
  Company Number: PHEH2014US006007

PATIENT
  Age: 48 Year
  Sex: Male

DRUGS (10)
  1. GILENYA [Suspect]
     Indication: MULTIPLE SCLEROSIS
     Dosage: 0.5 MG, QD
     Route: 048
     Dates: start: 20140324, end: 20140325
  2. WELLBUTRIN [Concomitant]
     Dosage: 150 MG, QD
     Route: 048
  3. VIT D [Concomitant]
     Dosage: 50000 U, QW
     Route: 048
  4. NEURONTIN [Concomitant]
     Dosage: 300 MG, TID
  5. NORCO [Concomitant]
     Dosage: 5-325 MG
  6. IBUPROFEN [Concomitant]
     Dosage: 100 MG, Q6H, AS NEEDED
     Route: 048
  7. MOMETASONE [Concomitant]
     Dosage: 50 UG, 2 SPRAY IN EACH NOSTRIL AS NEEDED
     Route: 045
  8. PANTOPRAZOLE [Concomitant]
     Dosage: 40 MG, BID
     Route: 048
  9. TAMSULOSIN [Concomitant]
     Indication: URINARY HESITATION
     Dosage: 0.4 MG, QD NIGHT TIME
     Route: 048
  10. LORAZEPAM [Concomitant]
     Dosage: 0.5 MG, QD
     Route: 048

REACTIONS (4)
  - Electrocardiogram QT prolonged [Recovered/Resolved]
  - Bradycardia [Recovered/Resolved]
  - Blood pressure decreased [Unknown]
  - Palpitations [Recovered/Resolved]
